FAERS Safety Report 19960582 (Version 3)
Quarter: 2023Q4

REPORT INFORMATION
  Report Type: Spontaneous
  Country: JP (occurrence: None)
  Receive Date: 20211015
  Receipt Date: 20231101
  Transmission Date: 20240110
  Serious: Yes (Hospitalization)
  Sender: FDA-Public Use
  Company Number: 2021A767015

PATIENT
  Age: 76 Year
  Sex: Male
  Weight: 47 kg

DRUGS (1)
  1. LYNPARZA [Suspect]
     Active Substance: OLAPARIB
     Indication: Hormone-refractory prostate cancer
     Route: 048
     Dates: start: 202106

REACTIONS (1)
  - Interstitial lung disease [Recovering/Resolving]
